FAERS Safety Report 8766885 (Version 1)
Quarter: 2012Q4

REPORT INFORMATION
  Report Type: Report from Study
  Country: FR (occurrence: FR)
  Receive Date: 20120904
  Receipt Date: 20120904
  Transmission Date: 20130627
  Serious: Yes (Hospitalization, Other)
  Sender: FDA-Public Use
  Company Number: FR-GENZYME-CLOF-1002277

PATIENT
  Age: 12 Year
  Sex: Female
  Weight: 51 kg

DRUGS (6)
  1. EVOLTRA [Suspect]
     Indication: ACUTE LYMPHOCYTIC LEUKAEMIA
     Dosage: 48 mg, qd
     Route: 042
     Dates: start: 20120712, end: 20120716
  2. DEXAMETHASONE [Suspect]
     Indication: ACUTE LYMPHOCYTIC LEUKAEMIA
     Dosage: 28 mg, qd
     Route: 048
     Dates: start: 20120706, end: 20120716
  3. MITOXANTRONE [Suspect]
     Indication: ACUTE LYMPHOCYTIC LEUKAEMIA
     Dosage: 12 mg, qd
     Route: 042
     Dates: start: 20120714, end: 20120715
  4. ETOPOSIDE [Suspect]
     Indication: ACUTE LYMPHOCYTIC LEUKAEMIA
     Dosage: 223 mg, qd
     Route: 042
     Dates: start: 20120714, end: 20120716
  5. L-ASPARAGINASE [Suspect]
     Indication: ACUTE LYMPHOCYTIC LEUKAEMIA
     Dosage: UNK
     Route: 065
     Dates: start: 20120726
  6. ACYCLOVIR [Concomitant]
     Indication: INFECTION PROPHYLAXIS
     Dosage: UNK
     Route: 065

REACTIONS (27)
  - Colitis [Recovered/Resolved]
  - Ascites [Unknown]
  - Gastrointestinal disorder [Unknown]
  - Blood calcium decreased [Unknown]
  - Blood potassium decreased [Unknown]
  - Protein total decreased [Unknown]
  - Osteonecrosis [Unknown]
  - Hepatic steatosis [Unknown]
  - Abscess [Unknown]
  - Glucose tolerance impaired [Unknown]
  - Hypoproteinaemia [Unknown]
  - Pleural effusion [Not Recovered/Not Resolved]
  - Venoocclusive disease [Unknown]
  - Bone marrow failure [Unknown]
  - Septic shock [Unknown]
  - Septic shock [Recovered/Resolved]
  - Lung infection [Unknown]
  - Mucosal inflammation [Recovered/Resolved]
  - Neutropenia [Recovered/Resolved]
  - Pericardial effusion [Unknown]
  - Infection [Unknown]
  - Human herpesvirus 6 infection [Unknown]
  - Aspergillosis [Unknown]
  - Abdominal pain [Unknown]
  - Pyrexia [Recovered/Resolved]
  - Oedema [Unknown]
  - Pain [Unknown]
